FAERS Safety Report 5723534-6 (Version None)
Quarter: 2008Q2

REPORT INFORMATION
  Report Type: 
  Country: None (occurrence: None)
  Receive Date: 20080425
  Receipt Date: 20080204
  Transmission Date: 20081010
  Serious: Yes (Other)
  Sender: FDA-Public Use
  Company Number: 2008-BP-01360BP

PATIENT
  Age: 37 Year
  Sex: Male

DRUGS (12)
  1. APTIVUS [Suspect]
     Indication: HIV INFECTION
     Dosage: TPV/RTV 1000/400MG (SEE TEXT,TPV/RTV 250/100 MG),PO
     Route: 048
     Dates: start: 20060110, end: 20080111
  2. RALTEGRAVIR(ALL OTHER THERAPEUTIC PRODUCTS) [Suspect]
     Indication: HIV INFECTION
     Dosage: 800 MG (400 MG,800MG BID),PO ; 800 MG (400 MG,800 MG BID),PO
     Route: 048
     Dates: start: 20071204, end: 20080109
  3. RALTEGRAVIR(ALL OTHER THERAPEUTIC PRODUCTS) [Suspect]
     Indication: HIV INFECTION
     Dosage: 800 MG (400 MG,800MG BID),PO ; 800 MG (400 MG,800 MG BID),PO
     Route: 048
     Dates: start: 20080130
  4. TENOFOVIR DISOPROXIL FUMARATE [Suspect]
     Indication: ANTIRETROVIRAL THERAPY
     Dosage: (SEE TEXT,300 QD)
     Dates: start: 20060110, end: 20080111
  5. COMBIVIR [Suspect]
     Indication: ANTIRETROVIRAL THERAPY
     Dosage: (1 PO BID),PO
     Route: 048
     Dates: start: 20060110, end: 20080111
  6. FUZEON [Concomitant]
  7. AMPRENAVIR (AMPRENAVIR) [Concomitant]
  8. KALETRA [Concomitant]
  9. INDINIVIR SULFATE [Concomitant]
  10. ACYCLOVIR [Concomitant]
  11. KLONOPIN [Concomitant]
  12. AMBIEN [Concomitant]

REACTIONS (1)
  - LIVER FUNCTION TEST ABNORMAL [None]
